FAERS Safety Report 8621349-2 (Version None)
Quarter: 2012Q3

REPORT INFORMATION
  Report Type: 
  Country: None (occurrence: None)
  Receive Date: 20120824
  Receipt Date: 20120821
  Transmission Date: 20120928
  Serious: Yes (Disabling, Other)
  Sender: FDA-Public Use
  Company Number: US-PFIZER INC-2012145019

PATIENT
  Age: 60 Year
  Sex: Female
  Weight: 74.83 kg

DRUGS (6)
  1. LYRICA [Suspect]
     Indication: FIBROMYALGIA
     Dosage: 150 MG, 1 CAP 2X/DAY
     Route: 048
     Dates: start: 20090101
  2. OXYCONTIN [Concomitant]
  3. METOPROLOL [Concomitant]
     Indication: HYPERTENSION
     Dosage: UNK
  4. OMEPRAZOLE [Concomitant]
     Dosage: UNK
  5. AMLODIPINE [Concomitant]
     Indication: HYPERTENSION
     Dosage: UNK
  6. PERCOCET [Concomitant]
     Dosage: UNK

REACTIONS (6)
  - SPINAL FRACTURE [None]
  - SPONDYLOLISTHESIS [None]
  - CARPAL TUNNEL SYNDROME [None]
  - BONE DISORDER [None]
  - OSTEOARTHRITIS [None]
  - FIBROMYALGIA [None]
